FAERS Safety Report 25970574 (Version 1)
Quarter: 2025Q4

REPORT INFORMATION
  Report Type: Spontaneous
  Country: CN (occurrence: CN)
  Receive Date: 20251028
  Receipt Date: 20251028
  Transmission Date: 20260117
  Serious: Yes (Hospitalization)
  Sender: BAYER HEALTHCARE PHARMACEUTICALS INC.
  Company Number: CN-BAYER-2025A139197

PATIENT
  Age: 67 Year
  Sex: Male
  Weight: 65 kg

DRUGS (4)
  1. GADOBUTROL [Suspect]
     Active Substance: GADOBUTROL
     Indication: Magnetic resonance imaging hepatobiliary
     Dosage: 7.5 MG, ONCE
     Route: 040
     Dates: start: 20250926, end: 20250926
  2. GADOBUTROL [Suspect]
     Active Substance: GADOBUTROL
     Indication: Hepatic lesion
  3. IODIXANOL [Suspect]
     Active Substance: IODIXANOL
     Indication: Computerised tomogram liver
     Dosage: 100 ML, ONCE
     Route: 040
     Dates: start: 20250925, end: 20250925
  4. IODIXANOL [Suspect]
     Active Substance: IODIXANOL
     Indication: Hepatic lesion

REACTIONS (12)
  - Purpura [Recovering/Resolving]
  - Rash erythematous [Recovering/Resolving]
  - Prothrombin time prolonged [None]
  - International normalised ratio increased [None]
  - Prothrombin level decreased [None]
  - Fibrin D dimer increased [None]
  - White blood cell count decreased [None]
  - Neutrophil count decreased [None]
  - Lymphocyte count decreased [None]
  - Red blood cell count decreased [None]
  - Haemoglobin decreased [None]
  - Mean cell volume decreased [None]

NARRATIVE: CASE EVENT DATE: 20250929
